FAERS Safety Report 13433682 (Version 2)
Quarter: 2017Q2

REPORT INFORMATION
  Report Type: Spontaneous
  Country: JP (occurrence: JP)
  Receive Date: 20170412
  Receipt Date: 20170516
  Transmission Date: 20170830
  Serious: Yes (Hospitalization, Other)
  Sender: FDA-Public Use
  Company Number: JP-GILEAD-2017-0266927

PATIENT
  Age: 75 Year
  Sex: Female

DRUGS (7)
  1. HALCION [Concomitant]
     Active Substance: TRIAZOLAM
  2. CYMBALTA [Concomitant]
     Active Substance: DULOXETINE HYDROCHLORIDE
  3. ROZEREM [Concomitant]
     Active Substance: RAMELTEON
  4. REMERON [Concomitant]
     Active Substance: MIRTAZAPINE
  5. EQUA [Concomitant]
     Active Substance: VILDAGLIPTIN
  6. HARVONI [Suspect]
     Active Substance: LEDIPASVIR\SOFOSBUVIR
     Indication: CHRONIC HEPATITIS C
     Dosage: 1 DF, UNK
     Route: 048
     Dates: start: 20170324, end: 2017
  7. BELSOMRA [Concomitant]
     Active Substance: SUVOREXANT

REACTIONS (2)
  - Fall [Unknown]
  - Cervical vertebral fracture [Not Recovered/Not Resolved]

NARRATIVE: CASE EVENT DATE: 2017
